FAERS Safety Report 13279930 (Version 1)
Quarter: 2017Q1

REPORT INFORMATION
  Report Type: Spontaneous
  Country: US (occurrence: US)
  Receive Date: 20170228
  Receipt Date: 20170228
  Transmission Date: 20170428
  Serious: Yes (Disabling, Other)
  Sender: FDA-Public Use
  Company Number: None

PATIENT
  Age: 25 Year
  Sex: Female
  Weight: 62.55 kg

DRUGS (1)
  1. CLINDAMYCIN. [Suspect]
     Active Substance: CLINDAMYCIN
     Indication: BACTERIAL VAGINOSIS
     Dosage: ?          QUANTITY:1 GRAMS;OTHER FREQUENCY:ONE TIME USE;?
     Route: 067
     Dates: start: 20161230, end: 20161230

REACTIONS (3)
  - Back pain [None]
  - Arthralgia [None]
  - Spinal pain [None]

NARRATIVE: CASE EVENT DATE: 20161230
